FAERS Safety Report 5609125-6 (Version None)
Quarter: 2008Q1

REPORT INFORMATION
  Report Type: 
  Country: None (occurrence: None)
  Receive Date: 20080131
  Receipt Date: 20080116
  Transmission Date: 20080703
  Serious: Yes (Other)
  Sender: FDA-Public Use
  Company Number: ES-TEVA-166497ISR

PATIENT
  Age: 72 Year
  Sex: Male

DRUGS (2)
  1. ENALAPRIL [Suspect]
  2. GLIPIZIDE [Interacting]
     Indication: TYPE 2 DIABETES MELLITUS

REACTIONS (1)
  - PANCYTOPENIA [None]
